FAERS Safety Report 10458866 (Version 4)
Quarter: 2014Q4

REPORT INFORMATION
  Report Type: Report from Study
  Country: DE (occurrence: DE)
  Receive Date: 20140917
  Receipt Date: 20141219
  Transmission Date: 20150528
  Serious: Yes (Hospitalization)
  Sender: FDA-Public Use
  Company Number: DE-UCBSA-2014011231

PATIENT
  Age: 36 Year
  Sex: Female
  Weight: 57.6 kg

DRUGS (1)
  1. CERTOLIZUMAB PEGOL ASP [Suspect]
     Active Substance: CERTOLIZUMAB PEGOL
     Indication: ANKYLOSING SPONDYLITIS
     Dosage: 400 MG, UNK
     Route: 058
     Dates: start: 20110530, end: 20140905

REACTIONS (1)
  - Infected dermal cyst [Recovered/Resolved]

NARRATIVE: CASE EVENT DATE: 20140817
